FAERS Safety Report 18133974 (Version 1)
Quarter: 2020Q3

REPORT INFORMATION
  Report Type: Spontaneous
  Country: US (occurrence: US)
  Receive Date: 20200807
  Receipt Date: 20200807
  Transmission Date: 20201103
  Serious: No
  Sender: FDA-Public Use
  Company Number: None

PATIENT
  Age: 78 Year
  Sex: Male

DRUGS (14)
  1. ACYCLOVIR. [Concomitant]
     Active Substance: ACYCLOVIR
  2. ARUNITY ELLIPTA [Concomitant]
  3. COMBIVENT RESPIMAT [Concomitant]
     Active Substance: ALBUTEROL SULFATE\IPRATROPIUM BROMIDE
  4. FISH OIL [Concomitant]
     Active Substance: FISH OIL
  5. VALSARTAN. [Concomitant]
     Active Substance: VALSARTAN
  6. PERCOCET [Concomitant]
     Active Substance: ACETAMINOPHEN\OXYCODONE HYDROCHLORIDE
  7. NINLARO [Suspect]
     Active Substance: IXAZOMIB CITRATE
     Indication: PLASMA CELL MYELOMA
     Dosage: ?          OTHER FREQUENCY:DAYS1,8 15/28 DAYS;?
     Route: 048
  8. SAW PALMETTO COMPLEX [Concomitant]
  9. ELIQUIS [Concomitant]
     Active Substance: APIXABAN
  10. 1?1YSINE [Concomitant]
  11. SPIRIVA RESPIMAT [Concomitant]
     Active Substance: TIOTROPIUM BROMIDE
  12. CALCIUM [Concomitant]
     Active Substance: CALCIUM
  13. VALIUM [Concomitant]
     Active Substance: DIAZEPAM
  14. GLUCOSAMINE/CHONDROITIN [Concomitant]

REACTIONS (1)
  - Aortic valve disease [None]

NARRATIVE: CASE EVENT DATE: 20200806
